FAERS Safety Report 11061085 (Version 2)
Quarter: 2015Q2

REPORT INFORMATION
  Report Type: Spontaneous
  Country: MY (occurrence: MY)
  Receive Date: 20150424
  Receipt Date: 20150504
  Transmission Date: 20150821
  Serious: Yes (Hospitalization)
  Sender: FDA-Public Use
  Company Number: MY-AUROBINDO-AUR-APL-2015-03559

PATIENT
  Age: 59 Year
  Sex: Female

DRUGS (1)
  1. SARANTO TABLETS [Suspect]
     Active Substance: LOSARTAN POTASSIUM
     Indication: HYPERTENSION
     Dosage: 50 MG, UNK
     Route: 065
     Dates: start: 201502

REACTIONS (4)
  - Drug ineffective [Unknown]
  - Cerebrovascular accident [Unknown]
  - Hypertension [Unknown]
  - Muscular weakness [Unknown]

NARRATIVE: CASE EVENT DATE: 20150209
